FAERS Safety Report 5676781-6 (Version None)
Quarter: 2008Q1

REPORT INFORMATION
  Report Type: 
  Country: None (occurrence: None)
  Receive Date: 20080318
  Receipt Date: 20080305
  Transmission Date: 20080703
  Serious: Yes (Other)
  Sender: FDA-Public Use
  Company Number: GXKR2007GB00462

PATIENT
  Age: 72 Year
  Sex: Female

DRUGS (4)
  1. LISINOPRIL [Suspect]
     Dosage: 10MG,
  2. SPIRONOLACTONE [Suspect]
     Indication: HYPERTENSION
     Dosage: 12.5 MG, QD,
  3. BENDROFLUMETHIAZIDE  (BENDROFLUMETHIAZIDE) [Concomitant]
  4. FELODIPINE [Concomitant]

REACTIONS (9)
  - BLOOD CREATININE INCREASED [None]
  - BLOOD PRESSURE INADEQUATELY CONTROLLED [None]
  - BLOOD PRESSURE INCREASED [None]
  - BRONCHOSPASM [None]
  - EPISTAXIS [None]
  - HYPERKALAEMIA [None]
  - NASAL CONGESTION [None]
  - NAUSEA [None]
  - NO THERAPEUTIC RESPONSE [None]
